FAERS Safety Report 24623185 (Version 1)
Quarter: 2024Q4

REPORT INFORMATION
  Report Type: Spontaneous
  Country: US (occurrence: US)
  Receive Date: 20241115
  Receipt Date: 20241115
  Transmission Date: 20250114
  Serious: No
  Sender: ELI LILLY AND COMPANY
  Company Number: US-ELI_LILLY_AND_COMPANY-US202411009025

PATIENT
  Age: 66 Year
  Sex: Female
  Weight: 67.3 kg

DRUGS (8)
  1. STRATTERA [Interacting]
     Active Substance: ATOMOXETINE HYDROCHLORIDE
     Indication: Product used for unknown indication
     Dosage: UNK, UNKNOWN
     Route: 065
  2. BRUKINSA [Interacting]
     Active Substance: ZANUBRUTINIB
     Indication: Diffuse large B-cell lymphoma
     Dosage: 320 MG
     Route: 048
     Dates: start: 20240306
  3. BRUKINSA [Interacting]
     Active Substance: ZANUBRUTINIB
     Indication: Waldenstrom^s macroglobulinaemia
     Dosage: 240 MG, DAILY
     Route: 048
  4. BRUKINSA [Interacting]
     Active Substance: ZANUBRUTINIB
     Dosage: 240 MG, DAILY
     Route: 048
  5. BRUKINSA [Interacting]
     Active Substance: ZANUBRUTINIB
     Dosage: 320 MG, DAILY
     Route: 048
     Dates: start: 20240307
  6. BRUKINSA [Interacting]
     Active Substance: ZANUBRUTINIB
     Dosage: 240 MG, DAILY
     Route: 048
     Dates: start: 20240307
  7. BRUKINSA [Interacting]
     Active Substance: ZANUBRUTINIB
     Dosage: 240 MG, DAILY
     Route: 048
     Dates: start: 20240307
  8. HYDROCHLOROTHIAZIDE [Interacting]
     Active Substance: HYDROCHLOROTHIAZIDE
     Indication: Product used for unknown indication
     Dosage: UNK, UNKNOWN
     Route: 065

REACTIONS (28)
  - Eye pain [Not Recovered/Not Resolved]
  - Gastrooesophageal reflux disease [Unknown]
  - Myalgia [Not Recovered/Not Resolved]
  - Arthralgia [Not Recovered/Not Resolved]
  - Weight increased [Unknown]
  - Abdominal distension [Unknown]
  - Skin hypertrophy [Unknown]
  - Arthralgia [Unknown]
  - Respiration abnormal [Unknown]
  - Dental implantation [Unknown]
  - Tooth disorder [Unknown]
  - Constipation [Unknown]
  - Throat irritation [Unknown]
  - Drug interaction [Unknown]
  - Intentional dose omission [Unknown]
  - Nervousness [Unknown]
  - Nausea [Recovering/Resolving]
  - Decreased appetite [Not Recovered/Not Resolved]
  - Fatigue [Not Recovered/Not Resolved]
  - Headache [Not Recovered/Not Resolved]
  - Hypertension [Unknown]
  - Blood pressure increased [Unknown]
  - Rash [Unknown]
  - Vomiting [Unknown]
  - Hyperhidrosis [Unknown]
  - Depressed mood [Unknown]
  - Pruritus [Unknown]
  - Pruritus [Unknown]

NARRATIVE: CASE EVENT DATE: 20240306
